FAERS Safety Report 23231363 (Version 1)
Quarter: 2023Q4

REPORT INFORMATION
  Report Type: Spontaneous
  Country: JP (occurrence: JP)
  Receive Date: 20231127
  Receipt Date: 20231127
  Transmission Date: 20240109
  Serious: Yes (Life-Threatening, Hospitalization, Disabling)
  Sender: FDA-Public Use
  Company Number: JP-BAYER-2023A168524

PATIENT
  Age: 51 Year
  Sex: Male
  Weight: 99 kg

DRUGS (10)
  1. IOPROMIDE [Suspect]
     Active Substance: IOPROMIDE
     Indication: Catheterisation cardiac
     Dosage: 100 ML, ONCE
     Dates: start: 20231024, end: 20231024
  2. CLOPIDOGREL [Concomitant]
     Active Substance: CLOPIDOGREL BISULFATE
     Dosage: 75 MG
     Route: 048
  3. ESOMEPRAZOLE [Concomitant]
     Active Substance: ESOMEPRAZOLE
     Dosage: 25 MG
     Route: 048
  4. EZETIMIBE [Concomitant]
     Active Substance: EZETIMIBE
     Dosage: 10 MG
     Route: 048
  5. ATORVASTATIN [Concomitant]
     Active Substance: ATORVASTATIN
     Dosage: 10 MG
     Route: 048
  6. FEBUXOSTAT [Concomitant]
     Active Substance: FEBUXOSTAT
     Dosage: 20 MG
     Route: 048
  7. FEBUXOSTAT [Concomitant]
     Active Substance: FEBUXOSTAT
     Dosage: 10 MG
     Route: 048
  8. CARVEDILOL [Concomitant]
     Active Substance: CARVEDILOL
     Dosage: 2.5 MG
     Route: 048
  9. SAMSCA [Concomitant]
     Active Substance: TOLVAPTAN
     Dosage: 30 MG
     Route: 048
  10. SAMSCA [Concomitant]
     Active Substance: TOLVAPTAN
     Dosage: 15 MG
     Route: 048

REACTIONS (1)
  - Kounis syndrome [Not Recovered/Not Resolved]

NARRATIVE: CASE EVENT DATE: 20231024
